FAERS Safety Report 5268392-1 (Version None)
Quarter: 2007Q1

REPORT INFORMATION
  Report Type: 
  Country: None (occurrence: None)
  Receive Date: 20070319
  Receipt Date: 20070306
  Transmission Date: 20070707
  Serious: Yes (Hospitalization)
  Sender: FDA-Public Use
  Company Number: PHEH2007US02773

PATIENT
  Age: 42 Year
  Sex: Male

DRUGS (3)
  1. CLOZARIL [Suspect]
     Indication: SCHIZOPHRENIA, PARANOID TYPE
     Dosage: 900 MG, QD
     Dates: start: 19950101, end: 20060401
  2. CLOZARIL [Suspect]
     Dates: start: 20070302
  3. CLOZAPINE [Suspect]
     Dosage: 500 MG, QD
     Dates: start: 20061010, end: 20070301

REACTIONS (4)
  - HEAT STROKE [None]
  - NEUTROPHIL COUNT DECREASED [None]
  - PNEUMONIA [None]
  - WHITE BLOOD CELL COUNT DECREASED [None]
